FAERS Safety Report 19185990 (Version 2)
Quarter: 2021Q2

REPORT INFORMATION
  Report Type: Report from Study
  Country: AU (occurrence: AU)
  Receive Date: 20210427
  Receipt Date: 20210525
  Transmission Date: 20210717
  Serious: Yes (Other)
  Sender: FDA-Public Use
  Company Number: AU-TAKEDA-2019TUS014316

PATIENT
  Sex: Female

DRUGS (4)
  1. VEDOLIZUMAB [Suspect]
     Active Substance: VEDOLIZUMAB
     Dosage: 300 MILLIGRAM, Q6WEEKS
     Route: 065
  2. VEDOLIZUMAB [Suspect]
     Active Substance: VEDOLIZUMAB
     Indication: COLITIS ULCERATIVE
     Dosage: UNK
     Route: 065
  3. VEDOLIZUMAB [Suspect]
     Active Substance: VEDOLIZUMAB
     Dosage: 300 MILLIGRAM, Q4WEEKS
     Route: 065
  4. PARACETAMOL [Concomitant]
     Active Substance: ACETAMINOPHEN
     Dosage: 500 MILLIGRAM, PRN

REACTIONS (7)
  - Colitis ulcerative [Unknown]
  - Off label use [Unknown]
  - Blood iron decreased [Unknown]
  - Headache [Unknown]
  - Influenza like illness [Unknown]
  - Alopecia [Unknown]
  - Fatigue [Unknown]
